FAERS Safety Report 12132148 (Version 3)
Quarter: 2016Q2

REPORT INFORMATION
  Report Type: Spontaneous
  Country: JP (occurrence: JP)
  Receive Date: 20160301
  Receipt Date: 20160518
  Transmission Date: 20160815
  Serious: Yes (Death, Life-Threatening, Hospitalization)
  Sender: FDA-Public Use
  Company Number: JP-NOVOPROD-481655

PATIENT
  Age: 73 Year
  Sex: Female
  Weight: 75 kg

DRUGS (8)
  1. AMARYL [Concomitant]
     Active Substance: GLIMEPIRIDE
     Indication: TYPE 2 DIABETES MELLITUS
     Dosage: 1 MG, QD (OD)
     Route: 048
     Dates: start: 200507
  2. VICTOZA [Suspect]
     Active Substance: LIRAGLUTIDE
     Indication: TYPE 2 DIABETES MELLITUS
     Dosage: 0.9 MG
     Route: 058
     Dates: start: 20110221
  3. METGLUCO [Concomitant]
     Active Substance: METFORMIN HYDROCHLORIDE
     Indication: TYPE 2 DIABETES MELLITUS
     Dosage: 750.00 MG
     Route: 048
     Dates: start: 2003
  4. OLMETEC [Concomitant]
     Active Substance: OLMESARTAN MEDOXOMIL
     Indication: HORMONE THERAPY
     Dosage: 40. MG
     Route: 048
     Dates: start: 201108
  5. VICTOZA [Suspect]
     Active Substance: LIRAGLUTIDE
     Dosage: UNK
     Route: 058
     Dates: start: 20140210, end: 20150914
  6. CADUET [Concomitant]
     Active Substance: AMLODIPINE BESYLATE\ATORVASTATIN CALCIUM
     Indication: HORMONE THERAPY
     Dosage: UNK
     Route: 048
     Dates: start: 201108
  7. BASEN                              /01290601/ [Concomitant]
     Active Substance: VOGLIBOSE
     Indication: TYPE 2 DIABETES MELLITUS
     Dosage: 0.90 MG, QD (OD)
     Route: 048
     Dates: start: 200707
  8. BYETTA [Suspect]
     Active Substance: EXENATIDE
     Indication: TYPE 2 DIABETES MELLITUS
     Dosage: 20.00 ?G, BID
     Route: 058
     Dates: start: 20120605, end: 20140209

REACTIONS (2)
  - Diabetes mellitus inadequate control [Unknown]
  - Pancreatic carcinoma stage IV [Fatal]

NARRATIVE: CASE EVENT DATE: 201409
